FAERS Safety Report 9896456 (Version 1)
Quarter: 2014Q1

REPORT INFORMATION
  Report Type: Spontaneous
  Country: US (occurrence: US)
  Receive Date: 20140213
  Receipt Date: 20140213
  Transmission Date: 20141002
  Serious: No
  Sender: FDA-Public Use
  Company Number: US-BRISTOL-MYERS SQUIBB COMPANY-17448051

PATIENT
  Age: 64 Year
  Sex: Female

DRUGS (8)
  1. ABATACEPT SUBQ INJECTION 125MG/ML [Suspect]
     Route: 058
  2. PROTONIX [Concomitant]
  3. PREDNISONE [Concomitant]
  4. PLAQUENIL [Concomitant]
  5. NIACIN [Concomitant]
  6. MULTIVITAMIN [Concomitant]
  7. LOSARTAN [Concomitant]
  8. CALCIUM [Concomitant]

REACTIONS (1)
  - Drug ineffective [Unknown]
